FAERS Safety Report 5796567-1 (Version None)
Quarter: 2008Q2

REPORT INFORMATION
  Report Type: 
  Country: None (occurrence: None)
  Receive Date: 20080627
  Receipt Date: 20080523
  Transmission Date: 20081010
  Serious: Yes (Other)
  Sender: FDA-Public Use
  Company Number: 2008016569

PATIENT
  Sex: Female

DRUGS (2)
  1. ZYRTEC [Suspect]
  2. NORVASC [Suspect]

REACTIONS (5)
  - CARDIAC DISORDER [None]
  - DIZZINESS [None]
  - DRY MOUTH [None]
  - FIBROMYALGIA [None]
  - PAIN [None]
